FAERS Safety Report 6330945-7 (Version None)
Quarter: 2009Q3

REPORT INFORMATION
  Report Type: 
  Country: None (occurrence: None)
  Receive Date: 20090827
  Receipt Date: 20090817
  Transmission Date: 20100115
  Serious: Yes (Other)
  Sender: FDA-Public Use
  Company Number: TR-ELI_LILLY_AND_COMPANY-TR200908001102

PATIENT
  Age: 59 Year
  Sex: Female

DRUGS (2)
  1. HUMULIN R [Suspect]
     Indication: DIABETES MELLITUS
     Dosage: 20 IU, 2/D
     Route: 058
     Dates: start: 20090421
  2. LANTUS [Concomitant]
     Indication: DIABETES MELLITUS
     Dosage: 20 IU, EACH EVENING
     Route: 058

REACTIONS (2)
  - RETINAL HAEMORRHAGE [None]
  - VISUAL IMPAIRMENT [None]
